FAERS Safety Report 10976293 (Version 3)
Quarter: 2018Q2

REPORT INFORMATION
  Report Type: Spontaneous
  Country: US (occurrence: US)
  Receive Date: 20150401
  Receipt Date: 20180610
  Transmission Date: 20180711
  Serious: No
  Sender: FDA-Public Use
  Company Number: US-JNJFOC-20120904658

PATIENT
  Age: 28 Year
  Sex: Female
  Weight: 51.71 kg

DRUGS (2)
  1. RISPERIDONE. [Suspect]
     Active Substance: RISPERIDONE
     Indication: SCHIZOPHRENIA
     Dosage: 3 ML, 3 ML AND 3 ML
     Route: 048
     Dates: start: 19970724
  2. RISPERIDONE. [Suspect]
     Active Substance: RISPERIDONE
     Indication: DEAF MUTISM
     Dosage: 3 ML, 3 ML AND 3 ML
     Route: 048
     Dates: start: 19970724

REACTIONS (6)
  - Adverse drug reaction [Unknown]
  - Drug dose omission [Unknown]
  - Social avoidant behaviour [Not Recovered/Not Resolved]
  - Weight increased [Not Recovered/Not Resolved]
  - Sleep disorder [Unknown]
  - Incorrect dose administered [Unknown]

NARRATIVE: CASE EVENT DATE: 19970724
